FAERS Safety Report 19693320 (Version 2)
Quarter: 2022Q1

REPORT INFORMATION
  Report Type: Spontaneous
  Country: US (occurrence: US)
  Receive Date: 20210812
  Receipt Date: 20220125
  Transmission Date: 20220423
  Serious: Yes (Hospitalization)
  Sender: FDA-Public Use
  Company Number: US-SA-SAC20210811000117

PATIENT
  Age: 20 Year
  Sex: Male

DRUGS (4)
  1. ALPROLIX [Suspect]
     Active Substance: EFTRENONACOG ALFA
     Indication: Factor IX deficiency
     Dosage: 6700 U, QW
     Route: 042
     Dates: start: 201612
  2. ALPROLIX [Suspect]
     Active Substance: EFTRENONACOG ALFA
     Indication: Factor IX deficiency
     Dosage: 6700 U, QW
     Route: 042
     Dates: start: 201612
  3. ALPROLIX [Suspect]
     Active Substance: EFTRENONACOG ALFA
     Dosage: 4500 IU, QW
     Route: 042
     Dates: start: 202104
  4. ALPROLIX [Suspect]
     Active Substance: EFTRENONACOG ALFA
     Dosage: 4500 IU, QW
     Route: 042
     Dates: start: 202104

REACTIONS (3)
  - Surgery [Unknown]
  - Joint stiffness [Unknown]
  - Contusion [Unknown]

NARRATIVE: CASE EVENT DATE: 20210101
